FAERS Safety Report 5474007-X (Version None)
Quarter: 2007Q4

REPORT INFORMATION
  Report Type: 
  Country: None (occurrence: None)
  Receive Date: 20071002
  Receipt Date: 20070924
  Transmission Date: 20080405
  Serious: Yes (Other)
  Sender: FDA-Public Use
  Company Number: PHEH2006US04086

PATIENT
  Age: 58 Year
  Sex: Male

DRUGS (3)
  1. AREDIA [Suspect]
  2. ZOMETA [Suspect]
  3. ANTIHISTAMINES [Concomitant]
     Indication: SEASONAL ALLERGY

REACTIONS (17)
  - BONE DISORDER [None]
  - DENTAL CARIES [None]
  - DENTAL OPERATION [None]
  - DISCOMFORT [None]
  - DRY MOUTH [None]
  - ENDODONTIC PROCEDURE [None]
  - ERYTHEMA [None]
  - OSTEOMYELITIS [None]
  - OSTEONECROSIS [None]
  - PAIN [None]
  - PERIODONTAL DISEASE [None]
  - SENSITIVITY OF TEETH [None]
  - STOMATITIS [None]
  - SWELLING [None]
  - TOOTH EXTRACTION [None]
  - TOOTH INFECTION [None]
  - WOUND TREATMENT [None]
